FAERS Safety Report 20763003 (Version 1)
Quarter: 2022Q2

REPORT INFORMATION
  Report Type: Spontaneous
  Country: CZ (occurrence: CZ)
  Receive Date: 20220428
  Receipt Date: 20220428
  Transmission Date: 20220721
  Serious: Yes (Hospitalization)
  Sender: FDA-Public Use
  Company Number: CZ-MEDICOMINT-2022-027148

PATIENT
  Age: 21 Year
  Sex: Female

DRUGS (6)
  1. FLUOXETINE [Interacting]
     Active Substance: FLUOXETINE HYDROCHLORIDE
     Indication: Impulsive behaviour
     Dosage: 20 MILLIGRAM,  2-0-0
     Route: 065
  2. TRAZODONE [Interacting]
     Active Substance: TRAZODONE HYDROCHLORIDE
     Indication: Impulsive behaviour
     Dosage: 300 MILLIGRAM, QD, 300 MILLIGRAM,TBL. 1 TABLET AT NIGHT
  3. TRAZODONE HYDROCHLORIDE [Interacting]
     Active Substance: TRAZODONE HYDROCHLORIDE
     Indication: Mixed anxiety and depressive disorder
     Dosage: 1 DOSAGE FORM BEFORE NIGHT
     Route: 048
  4. TRAZODONE HYDROCHLORIDE [Interacting]
     Active Substance: TRAZODONE HYDROCHLORIDE
     Indication: Borderline personality disorder
     Dosage: UNK
     Route: 048
  5. TRAZODONE HYDROCHLORIDE [Interacting]
     Active Substance: TRAZODONE HYDROCHLORIDE
     Indication: Selective eating disorder
     Dosage: UNK
     Route: 048
  6. OXAZEPAM [Concomitant]
     Active Substance: OXAZEPAM
     Indication: Impulsive behaviour
     Dosage: 20 MG TBL: 1 TBL IN CASE OF PROBLEMS (MAXIMALLY 4X PER DAY, MINIMAL INTERVAL IN ADMINIS 3 HOU
     Route: 065

REACTIONS (3)
  - Toxicity to various agents [Unknown]
  - Tremor [Recovered/Resolved]
  - Drug interaction [Unknown]
